FAERS Safety Report 7117388-3 (Version None)
Quarter: 2010Q4

REPORT INFORMATION
  Report Type: 
  Country: None (occurrence: None)
  Receive Date: 20101122
  Receipt Date: 20101115
  Transmission Date: 20110411
  Serious: Yes (Other)
  Sender: FDA-Public Use
  Company Number: DE-PFIZER INC-2010151573

PATIENT
  Age: 79 Year
  Weight: 85 kg

DRUGS (12)
  1. PANTOPRAZOLE SODIUM [Suspect]
     Dosage: 20 MG X 4
  2. DIGITOXIN [Concomitant]
     Dosage: UNK
  3. MIRTAZAPINE [Concomitant]
     Dosage: UNK
  4. ZOPICLONE [Concomitant]
     Dosage: UNK
  5. BISOPROLOL [Concomitant]
     Dosage: UNK
  6. LISINOPRIL [Concomitant]
     Dosage: UNK
  7. HYDROCHLOROTHIAZIDE [Concomitant]
     Dosage: UNK
  8. TAMSULOSIN [Concomitant]
     Dosage: UNK
  9. ACETYLCYSTEINE [Concomitant]
     Dosage: UNK
  10. ACETYLSALICYLIC ACID [Concomitant]
     Dosage: UNK
  11. MAGNESIUM [Concomitant]
     Dosage: UNK
  12. METFORMIN [Concomitant]
     Dosage: UNK

REACTIONS (1)
  - SUICIDE ATTEMPT [None]
